FAERS Safety Report 5422513-6 (Version None)
Quarter: 2007Q3

REPORT INFORMATION
  Report Type: 
  Country: None (occurrence: None)
  Receive Date: 20070822
  Receipt Date: 20070809
  Transmission Date: 20080115
  Serious: Yes (Hospitalization)
  Sender: FDA-Public Use
  Company Number: ES-ELI_LILLY_AND_COMPANY-ES200708002415

PATIENT
  Age: 92 Year
  Sex: Female

DRUGS (5)
  1. FORTEO [Suspect]
     Indication: OSTEOPOROSIS
     Dosage: 20 UG, UNKNOWN
     Route: 058
     Dates: start: 20070401
  2. FORTEO [Suspect]
     Dosage: 20 UG, UNKNOWN
     Route: 058
  3. MADOPAR [Concomitant]
     Dosage: UNK, UNKNOWN
     Route: 065
  4. ADALAT [Concomitant]
     Dosage: UNK, UNKNOWN
     Route: 065
  5. SEROXAT [Concomitant]
     Dosage: UNK, UNKNOWN
     Route: 065

REACTIONS (1)
  - PYREXIA [None]
